FAERS Safety Report 13957126 (Version 1)
Quarter: 2017Q3

REPORT INFORMATION
  Report Type: Spontaneous
  Country: JP (occurrence: JP)
  Receive Date: 20170911
  Receipt Date: 20170911
  Transmission Date: 20171128
  Serious: Yes (Hospitalization, Other)
  Sender: FDA-Public Use
  Company Number: JP-MYLANLABS-2017M1055867

PATIENT
  Age: 8 Decade
  Sex: Male

DRUGS (2)
  1. CISPLATIN. [Suspect]
     Active Substance: CISPLATIN
     Indication: OESOPHAGEAL SQUAMOUS CELL CARCINOMA
     Dosage: 2-H INFUSION, 40 MG/ME2/DAY ON DAY1 AND 8
     Route: 065
  2. FLUOROURACIL. [Suspect]
     Active Substance: FLUOROURACIL
     Indication: OESOPHAGEAL SQUAMOUS CELL CARCINOMA
     Dosage: SLOW INFUSION, 400 MG/M2/DAY ON DAYS 1 TO 5 AND 8 TO 12
     Route: 065

REACTIONS (4)
  - Pleural effusion [Recovering/Resolving]
  - Pericardial effusion [Recovering/Resolving]
  - Ejection fraction [Recovering/Resolving]
  - Pleurisy [Recovering/Resolving]
